FAERS Safety Report 6344800-X (Version None)
Quarter: 2009Q3

REPORT INFORMATION
  Report Type: 
  Country: None (occurrence: None)
  Receive Date: 20090904
  Receipt Date: 20090820
  Transmission Date: 20100115
  Serious: Yes (Hospitalization)
  Sender: FDA-Public Use
  Company Number: 8051234

PATIENT
  Age: 70 Year
  Sex: Male

DRUGS (28)
  1. HYDROCODONE [Suspect]
  2. PROMETHAZINE HCL [Suspect]
  3. MORPHINE SULFATE INJ [Suspect]
  4. NALOXONE HCL [Suspect]
  5. HEPARIN SODIUM [Suspect]
  6. AMIODARONE HCL [Suspect]
  7. THALIDOMIDE [Suspect]
  8. DIPHENHYDRAMINE HCL [Suspect]
  9. LIDOCAINE [Suspect]
  10. DEXAMETHASONE [Suspect]
  11. RANITIDINE HYDROCHLORIDE [Suspect]
  12. OMEPRAZOLE [Suspect]
  13. MELOXICAM [Suspect]
  14. POLYETHYLENE GLYCOL 3350 [Suspect]
  15. TESTOSTERONE ENANTHATE [Suspect]
  16. PAMIDRONATE DISODIUM [Suspect]
  17. CEFIPIME HCL [Suspect]
  18. VANCOMYCIN HCL [Suspect]
  19. FLUCONAZOLE [Suspect]
  20. ACETAMINOPHEN [Suspect]
  21. PANTOPRAZOLE SODIUM [Suspect]
  22. ZOLPIDEM TARTRATE [Suspect]
  23. ALPRAZOLAM [Suspect]
  24. NEUPOGEN [Suspect]
  25. MEROPENEM [Suspect]
  26. DAPTOMCIN [Suspect]
  27. TOBRAMYCIN [Suspect]
  28. CASPOFUNGIN ACETATE [Suspect]

REACTIONS (15)
  - ACUTE GENERALISED EXANTHEMATOUS PUSTULOSIS [None]
  - ATRIAL FIBRILLATION [None]
  - BACK PAIN [None]
  - BLOOD CULTURE POSITIVE [None]
  - FEBRILE NEUTROPENIA [None]
  - HAEMATOCRIT DECREASED [None]
  - HAEMOGLOBIN DECREASED [None]
  - LETHARGY [None]
  - ORAL CANDIDIASIS [None]
  - OROPHARYNGEAL PAIN [None]
  - PSEUDOMONAS INFECTION [None]
  - PUSTULAR PSORIASIS [None]
  - STREPTOCOCCAL INFECTION [None]
  - UNRESPONSIVE TO STIMULI [None]
  - WHITE BLOOD CELL COUNT DECREASED [None]
